FAERS Safety Report 9263031 (Version 3)
Quarter: 2013Q3

REPORT INFORMATION
  Report Type: Spontaneous
  Country: US (occurrence: US)
  Receive Date: 20130430
  Receipt Date: 20130719
  Transmission Date: 20140515
  Serious: Yes (Other)
  Sender: FDA-Public Use
  Company Number: US-VERTEX PHARMACEUTICALS INC-2013-005505

PATIENT
  Age: 51 Year
  Sex: Male

DRUGS (7)
  1. INCIVEK [Suspect]
     Indication: HEPATITIS C
     Dosage: 750 MG, TID
     Route: 048
     Dates: start: 20130425, end: 20130528
  2. RIBAVIRIN [Suspect]
     Indication: HEPATITIS C
     Dosage: 2 DF, BID
     Route: 048
     Dates: start: 20130425, end: 20130528
  3. PEGINTERFERON ALFA [Suspect]
     Indication: HEPATITIS C
     Dosage: 180 ?G, QW
     Route: 058
     Dates: start: 20130425, end: 20130528
  4. DULERA [Concomitant]
  5. OXYCODONE [Concomitant]
  6. TRAZODONE [Concomitant]
  7. TUDORZA [Concomitant]

REACTIONS (13)
  - Convulsion [Unknown]
  - Loss of consciousness [Unknown]
  - Dizziness [Unknown]
  - Influenza like illness [Recovered/Resolved]
  - Headache [Unknown]
  - Pain [Unknown]
  - Emotional disorder [Unknown]
  - Anger [Unknown]
  - Decreased appetite [Recovered/Resolved]
  - Diarrhoea [Unknown]
  - Vomiting [Unknown]
  - Nausea [Unknown]
  - Retching [Recovered/Resolved]
